FAERS Safety Report 9605057 (Version 4)
Quarter: 2013Q4

REPORT INFORMATION
  Report Type: Spontaneous
  Country: JP (occurrence: JP)
  Receive Date: 20131008
  Receipt Date: 20131011
  Transmission Date: 20140711
  Serious: Yes (Other)
  Sender: FDA-Public Use
  Company Number: JP-PFIZER INC-2013278369

PATIENT
  Age: 84 Year
  Sex: Male

DRUGS (3)
  1. LIPITOR [Suspect]
     Dosage: 5 MG, 1X/DAY
     Route: 048
  2. EXFORGE [Suspect]
     Dosage: UNK
     Route: 048
  3. PLAVIX [Suspect]
     Dosage: UNK
     Route: 048

REACTIONS (2)
  - Choking [Unknown]
  - Dysphagia [Unknown]
